FAERS Safety Report 15139741 (Version 1)
Quarter: 2018Q3

REPORT INFORMATION
  Report Type: Spontaneous
  Country: IT (occurrence: IT)
  Receive Date: 20180713
  Receipt Date: 20180713
  Transmission Date: 20181010
  Serious: Yes (Other)
  Sender: FDA-Public Use
  Company Number: IT-AUROBINDO-AUR-APL-2018-035240

PATIENT
  Age: 34 Year
  Sex: Male

DRUGS (1)
  1. ARIPIPRAZOLE. [Suspect]
     Active Substance: ARIPIPRAZOLE
     Indication: PSYCHOTIC DISORDER
     Dosage: 10 MILLIGRAM, ONCE A DAY
     Route: 048
     Dates: start: 20180610, end: 20180610

REACTIONS (4)
  - Extrapyramidal disorder [Unknown]
  - Dyskinesia [Unknown]
  - Dyspnoea [Unknown]
  - Bruxism [Unknown]

NARRATIVE: CASE EVENT DATE: 20180610
